FAERS Safety Report 15332949 (Version 2)
Quarter: 2018Q3

REPORT INFORMATION
  Report Type: Spontaneous
  Country: US (occurrence: US)
  Receive Date: 20180830
  Receipt Date: 20180905
  Transmission Date: 20181010
  Serious: No
  Sender: FDA-Public Use
  Company Number: US-HORIZON-RAV-0143-2018

PATIENT
  Age: 39 Year
  Sex: Female

DRUGS (2)
  1. RAVICTI [Suspect]
     Active Substance: GLYCEROL PHENYLBUTYRATE
     Indication: UREA CYCLE DISORDER
     Dosage: 2.5 ML TID WITH MEALS
  2. ARGININE [Concomitant]
     Active Substance: ARGININE

REACTIONS (3)
  - Malaise [Unknown]
  - Drug dose omission [Unknown]
  - Dizziness [Unknown]
